FAERS Safety Report 19416111 (Version 3)
Quarter: 2021Q2

REPORT INFORMATION
  Report Type: Spontaneous
  Country: IN (occurrence: IN)
  Receive Date: 20210614
  Receipt Date: 20210630
  Transmission Date: 20210717
  Serious: Yes (Other)
  Sender: FDA-Public Use
  Company Number: IN-PFIZER INC-2021651682

PATIENT
  Age: 72 Year
  Sex: Male

DRUGS (2)
  1. DACOPLICE [Suspect]
     Active Substance: DACOMITINIB
     Dosage: 45 MG
     Route: 048
     Dates: start: 20210602
  2. DACOPLICE [Suspect]
     Active Substance: DACOMITINIB
     Dosage: 45 MG
     Route: 048
     Dates: start: 20210128

REACTIONS (2)
  - Creatinine renal clearance decreased [Unknown]
  - Pleural effusion [Unknown]
